FAERS Safety Report 17030299 (Version 2)
Quarter: 2019Q4

REPORT INFORMATION
  Report Type: Spontaneous
  Country: CA (occurrence: CA)
  Receive Date: 20191114
  Receipt Date: 20191119
  Transmission Date: 20200122
  Serious: Yes (Death)
  Sender: FDA-Public Use
  Company Number: CA-PFIZER INC-2019490670

PATIENT
  Age: 64 Year
  Sex: Female
  Weight: 79 kg

DRUGS (3)
  1. PANTOPRAZOLE [Suspect]
     Active Substance: PANTOPRAZOLE
     Dosage: UNK
     Route: 065
  2. TAFINLAR [Interacting]
     Active Substance: DABRAFENIB MESYLATE
     Indication: MALIGNANT MELANOMA
     Dosage: 300 MILLIGRAM
     Route: 048
  3. MEKINIST [Interacting]
     Active Substance: TRAMETINIB DIMETHYL SULFOXIDE
     Indication: MALIGNANT MELANOMA
     Dosage: 2 MILLIGRAM
     Route: 048

REACTIONS (6)
  - Drug interaction [Unknown]
  - Abdominal tenderness [Unknown]
  - Death [Fatal]
  - Abdominal distension [Unknown]
  - Flatulence [Unknown]
  - Influenza [Unknown]
